FAERS Safety Report 9654904 (Version 1)
Quarter: 2013Q4

REPORT INFORMATION
  Report Type: Spontaneous
  Country: US (occurrence: US)
  Receive Date: 20131029
  Receipt Date: 20131029
  Transmission Date: 20140711
  Serious: No
  Sender: FDA-Public Use
  Company Number: US-PURDUE-USA-2012-0090777

PATIENT
  Sex: Male

DRUGS (2)
  1. OXYCONTIN (NDA 22-272) [Suspect]
     Indication: PAIN
     Dosage: 10 MG, UNK
  2. HYDROCODONE FILM-COATED TAB (59,175) [Concomitant]
     Indication: ANALGESIC THERAPY
     Dosage: 30 MG, UNK

REACTIONS (1)
  - Inadequate analgesia [Unknown]
